FAERS Safety Report 7368458-6 (Version None)
Quarter: 2011Q1

REPORT INFORMATION
  Report Type: 
  Country: None (occurrence: None)
  Receive Date: 20110323
  Receipt Date: 20110318
  Transmission Date: 20110831
  Serious: Yes (Other)
  Sender: FDA-Public Use
  Company Number: JP-PFIZER INC-2011062175

PATIENT
  Sex: Female

DRUGS (2)
  1. GABAPEN [Suspect]
     Dosage: UNK
  2. LYRICA [Suspect]
     Dosage: UNK
     Route: 048

REACTIONS (2)
  - VISION BLURRED [None]
  - VISUAL ACUITY REDUCED [None]
